FAERS Safety Report 7347120-X (Version None)
Quarter: 2011Q1

REPORT INFORMATION
  Report Type: 
  Country: None (occurrence: None)
  Receive Date: 20110311
  Receipt Date: 20110227
  Transmission Date: 20110831
  Serious: Yes (Life-Threatening, Other)
  Sender: FDA-Public Use
  Company Number: BE-NOVOPROD-321906

PATIENT
  Sex: Male
  Weight: 104 kg

DRUGS (7)
  1. ZESTRIL [Concomitant]
     Dosage: 4 MG, QD
     Route: 048
  2. EZETROL [Concomitant]
     Dosage: 10 MG, QD
  3. NEURONTIN [Concomitant]
     Dosage: 600 MG, QD
     Route: 048
  4. ROSIGLITAZONE [Concomitant]
     Dosage: 4 MG, QD
     Route: 065
  5. GLIMEPIRIDE [Concomitant]
     Dosage: 6 MG, QD
     Route: 065
  6. PRAREDUCT [Concomitant]
     Dosage: 40 MG, QD
     Route: 048
  7. INSULATARD [Suspect]
     Indication: TYPE 2 DIABETES MELLITUS
     Dosage: 26 IU, QD
     Route: 058
     Dates: start: 20041006, end: 20050925

REACTIONS (5)
  - VERTIGO [None]
  - ANAPHYLACTIC SHOCK [None]
  - DRUG HYPERSENSITIVITY [None]
  - HOT FLUSH [None]
  - PRURITUS GENERALISED [None]
